FAERS Safety Report 5083729-4 (Version None)
Quarter: 2006Q3

REPORT INFORMATION
  Report Type: 
  Country: None (occurrence: None)
  Receive Date: 20060818
  Receipt Date: 20060807
  Transmission Date: 20061208
  Serious: Yes (Other)
  Sender: FDA-Public Use
  Company Number: US-ROCHE-458845

PATIENT
  Sex: Female

DRUGS (8)
  1. ACCUTANE [Suspect]
     Indication: ACNE
     Dates: start: 19890817, end: 19890917
  2. ACCUTANE [Suspect]
     Dosage: DOSAGE WAS INCREASED TO 40 MG DAILY.
     Dates: start: 19890918, end: 19891023
  3. ACCUTANE [Suspect]
     Dosage: DOSAGE DECREASED BACK TO 20 MG DAILY.
     Dates: start: 19891221
  4. ACCUTANE [Suspect]
     Dates: start: 19900608, end: 19900708
  5. ACCUTANE [Suspect]
     Dosage: DOSAGE WAS INCREASED TO 20 MG DAILY ALTERNATING WITH 40 MG DAILY.
     Dates: start: 19900709
  6. ACCUTANE [Suspect]
     Dates: start: 19900810
  7. ACCUTANE [Suspect]
  8. ACCUTANE [Suspect]
     Dosage: DOSAGE WAS INCREASED TO 40 MG DAILY.
     Dates: start: 19920616

REACTIONS (4)
  - DRUG EXPOSURE BEFORE PREGNANCY [None]
  - NO ADVERSE EFFECT [None]
  - NORMAL NEWBORN [None]
  - PREGNANCY [None]
